FAERS Safety Report 12393639 (Version 3)
Quarter: 2016Q3

REPORT INFORMATION
  Report Type: Report from Study
  Country: US (occurrence: US)
  Receive Date: 20160523
  Receipt Date: 20160714
  Transmission Date: 20161109
  Serious: Yes (Death, Hospitalization)
  Sender: FDA-Public Use
  Company Number: US-TAIHO ONCOLOGY INC-EU-2016-01023

PATIENT
  Age: 78 Year
  Sex: Male

DRUGS (7)
  1. INSULIN [Concomitant]
     Active Substance: INSULIN NOS
     Dosage: NI
  2. SYNTHROID [Concomitant]
     Active Substance: LEVOTHYROXINE SODIUM
     Dosage: NI
  3. LIPITOR [Concomitant]
     Active Substance: ATORVASTATIN CALCIUM
     Dosage: NI
  4. ACETYLSALICYLIC ACID [Concomitant]
     Active Substance: ASPIRIN
     Dosage: NI
  5. METOPROLOL. [Concomitant]
     Active Substance: METOPROLOL
     Dosage: NI
  6. POTASSIUM CHLORIDE. [Concomitant]
     Active Substance: POTASSIUM CHLORIDE
     Dosage: NI
  7. LONSURF [Suspect]
     Active Substance: TIPIRACIL HYDROCHLORIDE\TRIFLURIDINE
     Indication: COLON CANCER METASTATIC
     Dosage: CYCLE 1
     Route: 048
     Dates: start: 20160415, end: 20160416

REACTIONS (2)
  - Disease progression [Unknown]
  - Death [Fatal]

NARRATIVE: CASE EVENT DATE: 20160427
